FAERS Safety Report 9433191 (Version 2)
Quarter: 2013Q3

REPORT INFORMATION
  Report Type: Spontaneous
  Country: VE (occurrence: VE)
  Receive Date: 20130731
  Receipt Date: 20130806
  Transmission Date: 20140515
  Serious: Yes (Life-Threatening, Hospitalization)
  Sender: FDA-Public Use
  Company Number: VE-GLAXOSMITHKLINE-A1035607A

PATIENT
  Age: 52 Year
  Sex: Male
  Weight: 107 kg

DRUGS (2)
  1. VOTRIENT [Suspect]
     Indication: RENAL CANCER
     Dosage: 400MG PER DAY
     Route: 048
     Dates: start: 20130401, end: 20130724
  2. TAMSULOSIN [Concomitant]

REACTIONS (3)
  - Anal haemorrhage [Recovered/Resolved]
  - Abdominal pain [Recovered/Resolved]
  - Anaemia [Unknown]
